FAERS Safety Report 4392931-6 (Version None)
Quarter: 2004Q3

REPORT INFORMATION
  Report Type: 
  Country: None (occurrence: None)
  Receive Date: 20040702
  Receipt Date: 20040416
  Transmission Date: 20050211
  Serious: Yes (Other)
  Sender: FDA-Public Use
  Company Number: 2004UW07712

PATIENT
  Age: 39 Year
  Sex: Male

DRUGS (4)
  1. CRESTOR [Suspect]
     Dosage: 20 MG PO
     Route: 048
  2. LIPITOR [Concomitant]
  3. WELCHOL [Concomitant]
  4. ZETIA [Concomitant]

REACTIONS (1)
  - LOW DENSITY LIPOPROTEIN INCREASED [None]
